FAERS Safety Report 5069813-X (Version None)
Quarter: 2006Q3

REPORT INFORMATION
  Report Type: 
  Country: None (occurrence: None)
  Receive Date: 20060801
  Receipt Date: 20060801
  Transmission Date: 20061208
  Serious: Yes (Other)
  Sender: FDA-Public Use
  Company Number: None

PATIENT
  Age: 52 Year
  Sex: Female
  Weight: 84.8226 kg

DRUGS (6)
  1. ULTRAM [Suspect]
     Indication: BACK INJURY
     Dosage: 1    DAILY    PO
     Route: 048
     Dates: start: 20060629, end: 20060701
  2. ULTRAM [Suspect]
     Indication: JOINT INJURY
     Dosage: 1    DAILY    PO
     Route: 048
     Dates: start: 20060629, end: 20060701
  3. ULTRAM [Suspect]
     Indication: SURGERY
     Dosage: 1    DAILY    PO
     Route: 048
     Dates: start: 20060629, end: 20060701
  4. ULTRAM [Suspect]
     Indication: BACK INJURY
     Dosage: 1    DAILY    PO
     Route: 048
     Dates: start: 20060721, end: 20060724
  5. ULTRAM [Suspect]
     Indication: JOINT INJURY
     Dosage: 1    DAILY    PO
     Route: 048
     Dates: start: 20060721, end: 20060724
  6. ULTRAM [Suspect]
     Indication: SURGERY
     Dosage: 1    DAILY    PO
     Route: 048
     Dates: start: 20060721, end: 20060724

REACTIONS (5)
  - NAUSEA [None]
  - STOMACH DISCOMFORT [None]
  - VERTIGO [None]
  - VERTIGO POSITIONAL [None]
  - VOMITING [None]
